FAERS Safety Report 19013928 (Version 1)
Quarter: 2021Q1

REPORT INFORMATION
  Report Type: Spontaneous
  Country: RO (occurrence: RO)
  Receive Date: 20210316
  Receipt Date: 20210316
  Transmission Date: 20210420
  Serious: Yes (Life-Threatening, Other)
  Sender: FDA-Public Use
  Company Number: RO-ABBVIE-21K-135-3813940-00

PATIENT
  Age: 46 Year
  Sex: Male

DRUGS (12)
  1. TACROLIMUS. [Interacting]
     Active Substance: TACROLIMUS
     Dosage: EXTENDED RELEASE
     Route: 048
     Dates: start: 20200407, end: 20200410
  2. TACROLIMUS. [Interacting]
     Active Substance: TACROLIMUS
     Dosage: EXTENDED RELEASE
     Route: 048
     Dates: start: 20200410, end: 20200412
  3. LOPINAVIR/RITONAVIR [Suspect]
     Active Substance: LOPINAVIR\RITONAVIR
     Indication: COVID-19 PNEUMONIA
     Dosage: 400/100 MG
     Route: 048
     Dates: start: 20200414, end: 20200423
  4. CASPOFUNGIN [Concomitant]
     Active Substance: CASPOFUNGIN
     Indication: ANTIFUNGAL PROPHYLAXIS
     Dosage: FIRST DAY
     Dates: start: 20200414, end: 202004
  5. COTRIMOXAZOLE [Concomitant]
     Active Substance: SULFAMETHOXAZOLE\TRIMETHOPRIM
     Indication: ANTIBIOTIC PROPHYLAXIS
     Dosage: 400/80 MG
     Dates: start: 20200414, end: 20200419
  6. TACROLIMUS. [Interacting]
     Active Substance: TACROLIMUS
     Indication: IMMUNOSUPPRESSANT DRUG THERAPY
     Dosage: EXTENDED RELEASE
     Route: 048
     Dates: start: 201709, end: 20200407
  7. TACROLIMUS. [Interacting]
     Active Substance: TACROLIMUS
     Dosage: EXTENDED RELEASE
     Route: 048
     Dates: start: 20200428, end: 20200428
  8. TACROLIMUS. [Interacting]
     Active Substance: TACROLIMUS
     Dosage: EXTENDED RELEASE
     Route: 048
     Dates: start: 20200426, end: 20200428
  9. MEROPENEM. [Concomitant]
     Active Substance: MEROPENEM
     Indication: ANTIBIOTIC PROPHYLAXIS
     Dates: start: 20200414, end: 20200419
  10. LINEZOLID. [Concomitant]
     Active Substance: LINEZOLID
     Indication: ANTIBIOTIC PROPHYLAXIS
     Dosage: 1, 2 GRAM
     Dates: start: 20200414, end: 20200419
  11. HYDROXYCHLOROQUINE [Concomitant]
     Active Substance: HYDROXYCHLOROQUINE
     Indication: COVID-19 PNEUMONIA
     Dates: start: 20200410, end: 20200423
  12. CASPOFUNGIN [Concomitant]
     Active Substance: CASPOFUNGIN
     Dates: start: 202004, end: 20200427

REACTIONS (4)
  - Acute kidney injury [Recovered/Resolved]
  - Overdose [Recovered/Resolved]
  - Drug interaction [Recovered/Resolved]
  - Off label use [Unknown]

NARRATIVE: CASE EVENT DATE: 202004
